FAERS Safety Report 8907959 (Version 1)
Quarter: 2012Q4

REPORT INFORMATION
  Report Type: 
  Country: US (occurrence: US)
  Receive Date: 20121113
  Receipt Date: 20121113
  Transmission Date: 20130627
  Serious: No
  Sender: FDA-Public Use
  Company Number: US-AMGEN-USASP2012010156

PATIENT
  Age: 74 Year
  Sex: Female

DRUGS (12)
  1. ENBREL [Suspect]
     Indication: PRODUCT USED FOR UNKNOWN INDICATION
     Dosage: 50 mg, 2 times/wk
  2. AMBIEN [Concomitant]
     Dosage: 10 mg, UNK
  3. NEURONTIN [Concomitant]
     Dosage: 100 mg, UNK
  4. SYNTHROID [Concomitant]
     Dosage: 50 mug, UNK
  5. CAPTOPRIL [Concomitant]
     Dosage: 12.5 mg, UNK
  6. LEXAPRO [Concomitant]
     Dosage: 20 mg, UNK
  7. CALCIUM + VIT D [Concomitant]
     Dosage: UNK
  8. FISH OIL [Concomitant]
  9. MSM + GLUCOSAMINE [Concomitant]
  10. VITAMIN B COMPLEX [Concomitant]
  11. TYLENOL /00020001/ [Concomitant]
     Dosage: 325 mg, UNK
  12. HYDROCHLOROTHIAZIDE W/TRIAMTERENE [Concomitant]

REACTIONS (2)
  - Psoriasis [Unknown]
  - Hepatic enzyme increased [Unknown]
